FAERS Safety Report 9445474 (Version 1)
Quarter: 2013Q3

REPORT INFORMATION
  Report Type: Spontaneous
  Country: US (occurrence: US)
  Receive Date: 20130807
  Receipt Date: 20130807
  Transmission Date: 20140515
  Serious: Yes (Other)
  Sender: FDA-Public Use
  Company Number: US-PFIZER INC-2013224817

PATIENT
  Age: 56 Year
  Sex: Female
  Weight: 120 kg

DRUGS (8)
  1. CELEBREX [Suspect]
     Indication: ARTHRALGIA
     Dosage: 200MG DAILY
     Route: 048
     Dates: start: 2007, end: 201307
  2. CELEBREX [Suspect]
     Indication: BONE SWELLING
  3. CELEBREX [Suspect]
     Indication: FIBROMYALGIA
  4. CYMBALTA [Concomitant]
     Indication: DEPRESSION
     Dosage: UNK
  5. CYMBALTA [Concomitant]
     Indication: FIBROMYALGIA
  6. METFORMIN [Concomitant]
     Indication: DIABETES MELLITUS
     Dosage: 1000 MG, 2X/DAY
  7. GLIPIZIDE [Concomitant]
     Indication: DIABETES MELLITUS
     Dosage: 5MG DAILY
  8. FLEXERIL [Concomitant]
     Dosage: UNK

REACTIONS (7)
  - Cerebrovascular accident [Unknown]
  - Limb crushing injury [Not Recovered/Not Resolved]
  - Drug ineffective [Unknown]
  - Bone swelling [Unknown]
  - Blood cholesterol increased [Unknown]
  - Blood glucose increased [Unknown]
  - Blood potassium decreased [Unknown]
